FAERS Safety Report 10628761 (Version 1)
Quarter: 2014Q4

REPORT INFORMATION
  Report Type: Spontaneous
  Country: US (occurrence: US)
  Receive Date: 20141205
  Receipt Date: 20141205
  Transmission Date: 20150529
  Serious: No
  Sender: FDA-Public Use
  Company Number: US-BRISTOL-MYERS SQUIBB COMPANY-21280128

PATIENT
  Age: 53 Year
  Sex: Male

DRUGS (1)
  1. WARFARIN SODIUM. [Suspect]
     Active Substance: WARFARIN SODIUM

REACTIONS (5)
  - Nausea [Unknown]
  - Abdominal discomfort [Unknown]
  - Dry skin [Unknown]
  - Bone pain [Unknown]
  - Rash [Unknown]
